FAERS Safety Report 19526843 (Version 1)
Quarter: 2021Q3

REPORT INFORMATION
  Report Type: Spontaneous
  Country: FR (occurrence: FR)
  Receive Date: 20210713
  Receipt Date: 20210713
  Transmission Date: 20211014
  Serious: Yes (Hospitalization, Other)
  Sender: FDA-Public Use
  Company Number: FR-LUPIN PHARMACEUTICALS INC.-2021-11500

PATIENT
  Age: 4 Week
  Sex: Female
  Weight: 2.8 kg

DRUGS (5)
  1. SODIUM CHLORIDE. [Suspect]
     Active Substance: SODIUM CHLORIDE
     Indication: FLUID REPLACEMENT
     Dosage: 34 MMOL/L, AT A RATE OF 122ML/KG/DAY
     Route: 042
  2. CALCIUM [Suspect]
     Active Substance: CALCIUM
     Indication: FLUID REPLACEMENT
     Dosage: 2.26 MMOL/L AT A RATE OF 122 ML/KG/DAY
     Route: 042
  3. POTASSIUM CHLORIDE. [Suspect]
     Active Substance: POTASSIUM CHLORIDE
     Indication: FLUID REPLACEMENT
     Dosage: 20 MMOL/L (AT A RATE OF 122ML/KG/DAY)
     Route: 042
  4. BETAMETHASONE. [Concomitant]
     Active Substance: BETAMETHASONE
     Indication: PRODUCT USED FOR UNKNOWN INDICATION
     Dosage: 0.375 MILLIGRAM, QD
     Route: 048
  5. GLUCOSE [Suspect]
     Active Substance: DEXTROSE
     Indication: FLUID REPLACEMENT
     Dosage: 5 PERCENT AT A RATE OF 122 ML/KG/DAY
     Route: 042

REACTIONS (8)
  - Hypothermia [Unknown]
  - Neonatal respiratory distress [Unknown]
  - Hyponatraemia [Recovered/Resolved]
  - Selective eating disorder [Unknown]
  - Asthma [Unknown]
  - Intracranial pressure increased [Recovered/Resolved]
  - Laryngeal stenosis [Unknown]
  - Brain oedema [Recovered/Resolved]
